FAERS Safety Report 16552581 (Version 4)
Quarter: 2020Q3

REPORT INFORMATION
  Report Type: Spontaneous
  Country: US (occurrence: US)
  Receive Date: 20190710
  Receipt Date: 20200904
  Transmission Date: 20201102
  Serious: Yes (Hospitalization, Other)
  Sender: FDA-Public Use
  Company Number: US-PFIZER INC-2019283173

PATIENT
  Age: 73 Year
  Sex: Male
  Weight: 83.46 kg

DRUGS (4)
  1. SULFASALAZINE. [Concomitant]
     Active Substance: SULFASALAZINE
     Indication: ARTHRITIS
     Dosage: 500 MG, 2X/DAY (MORNING AND NIGHT)
     Route: 048
  2. XELJANZ XR [Suspect]
     Active Substance: TOFACITINIB CITRATE
     Indication: ARTHRITIS
     Dosage: 11 MG, 1X/DAY
     Route: 048
     Dates: start: 2017, end: 20200817
  3. METHOTREXATE [METHOTREXATE SODIUM] [Concomitant]
     Active Substance: METHOTREXATE SODIUM
     Dosage: UNK
  4. SULFADINE [Concomitant]
     Active Substance: SULFAMETHAZINE
     Dosage: UNK

REACTIONS (5)
  - Illness [Unknown]
  - Dyspepsia [Unknown]
  - Condition aggravated [Unknown]
  - Infection [Unknown]
  - Musculoskeletal discomfort [Unknown]
